FAERS Safety Report 5177589-0 (Version None)
Quarter: 2006Q4

REPORT INFORMATION
  Report Type: 
  Country: None (occurrence: None)
  Receive Date: 20061207
  Receipt Date: 20061125
  Transmission Date: 20070319
  Serious: Yes (Other)
  Sender: FDA-Public Use
  Company Number: 2006133679

PATIENT
  Age: 57 Year
  Sex: Female

DRUGS (5)
  1. ZITHROMAX [Suspect]
     Dates: start: 20061030, end: 20061030
  2. EVISTA [Concomitant]
  3. POTASSIUM (POTASSIUM) [Concomitant]
  4. ZOCOR [Concomitant]
  5. HYDROCHLOROTHIAZIDE [Concomitant]

REACTIONS (6)
  - ANXIETY [None]
  - DYSTONIA [None]
  - HYPERVENTILATION [None]
  - HYPOKALAEMIA [None]
  - INFECTION [None]
  - OCULOGYRATION [None]
